FAERS Safety Report 17765559 (Version 2)
Quarter: 2020Q2

REPORT INFORMATION
  Report Type: Spontaneous
  Country: ES (occurrence: ES)
  Receive Date: 20200511
  Receipt Date: 20200516
  Transmission Date: 20200714
  Serious: Yes (Hospitalization, Other)
  Sender: FDA-Public Use
  Company Number: ES-MACLEODS PHARMA UK LTD-MAC2020026425

PATIENT

DRUGS (2)
  1. CLOPIDOGREL [Suspect]
     Active Substance: CLOPIDOGREL BISULFATE
     Indication: SUICIDE ATTEMPT
     Dosage: 75 MILLIGRAM, QD
     Route: 065
  2. ASPIRIN 100 MG [Suspect]
     Active Substance: ASPIRIN
     Indication: CEREBROVASCULAR ACCIDENT
     Dosage: 100 MILLIGRAM, QD
     Route: 065

REACTIONS (4)
  - Pulmonary haemorrhage [Recovered/Resolved]
  - Haemothorax [Recovered/Resolved]
  - Intentional overdose [Recovered/Resolved]
  - Pleural effusion [Recovered/Resolved]
